FAERS Safety Report 25825995 (Version 1)
Quarter: 2025Q3

REPORT INFORMATION
  Report Type: Spontaneous
  Country: US (occurrence: US)
  Receive Date: 20250919
  Receipt Date: 20250919
  Transmission Date: 20251021
  Serious: Yes (Hospitalization)
  Sender: ELI LILLY AND COMPANY
  Company Number: US-ELI_LILLY_AND_COMPANY-US202509009117

PATIENT
  Age: 61 Year

DRUGS (1)
  1. MOUNJARO [Suspect]
     Active Substance: TIRZEPATIDE
     Indication: Product used for unknown indication
     Route: 065
     Dates: start: 202304, end: 202309

REACTIONS (6)
  - Dehydration [Unknown]
  - Wernicke^s encephalopathy [Unknown]
  - Vitamin C deficiency [Unknown]
  - Vitamin D deficiency [Unknown]
  - Vitamin B12 deficiency [Unknown]
  - Impaired gastric emptying [Unknown]
